FAERS Safety Report 5205003-5 (Version None)
Quarter: 2007Q1

REPORT INFORMATION
  Report Type: 
  Country: None (occurrence: None)
  Receive Date: 20070110
  Receipt Date: 20060928
  Transmission Date: 20070707
  Serious: No
  Sender: FDA-Public Use
  Company Number: US-BRISTOL-MYERS SQUIBB COMPANY-13524202

PATIENT
  Age: 12 Year
  Sex: Male
  Weight: 59 kg

DRUGS (3)
  1. ABILIFY [Suspect]
     Indication: ABNORMAL BEHAVIOUR
     Dosage: CURRENT DOSE 1/2 15MG TABLET IN THE AM. 1/4MG TABLET IN PM.
     Dates: start: 20060801
  2. ABILIFY [Suspect]
     Indication: DEPRESSION
     Dosage: CURRENT DOSE 1/2 15MG TABLET IN THE AM. 1/4MG TABLET IN PM.
     Dates: start: 20060801
  3. FOCALIN [Concomitant]

REACTIONS (2)
  - NAUSEA [None]
  - VOMITING [None]
